FAERS Safety Report 21381461 (Version 1)
Quarter: 2022Q3

REPORT INFORMATION
  Report Type: Spontaneous
  Country: US (occurrence: None)
  Receive Date: 20220926
  Receipt Date: 20220926
  Transmission Date: 20221027
  Serious: Yes (unspecified)
  Sender: FDA-Public Use
  Company Number: None

PATIENT
  Age: 40 Year
  Sex: Female
  Weight: 66.6 kg

DRUGS (12)
  1. CORTISONE [Suspect]
     Active Substance: CORTISONE
     Indication: Pain
     Dates: start: 20190102, end: 20220630
  2. HYDROCODONE [Concomitant]
     Active Substance: HYDROCODONE
  3. LAMICTAL [Concomitant]
     Active Substance: LAMOTRIGINE
  4. singluair [Concomitant]
  5. LITHIUM [Concomitant]
     Active Substance: LITHIUM
  6. XYZAL [Concomitant]
     Active Substance: LEVOCETIRIZINE DIHYDROCHLORIDE
  7. TIZANIDINE [Concomitant]
     Active Substance: TIZANIDINE
  8. MINOCYCLINE [Concomitant]
     Active Substance: MINOCYCLINE HYDROCHLORIDE
  9. ALBUTEROL [Concomitant]
     Active Substance: ALBUTEROL
  10. CANNABIS SATIVA SUBSP. INDICA TOP [Concomitant]
     Active Substance: CANNABIS SATIVA SUBSP. INDICA TOP
  11. PROMETHAZINE [Concomitant]
     Active Substance: PROMETHAZINE HYDROCHLORIDE
  12. Airborne immune boosters [Concomitant]

REACTIONS (5)
  - Lipoatrophy [None]
  - Tremor [None]
  - Muscle tightness [None]
  - Pain [None]
  - Headache [None]

NARRATIVE: CASE EVENT DATE: 20220623
